FAERS Safety Report 13312297 (Version 1)
Quarter: 2017Q1

REPORT INFORMATION
  Report Type: Spontaneous
  Country: US (occurrence: US)
  Receive Date: 20170309
  Receipt Date: 20170309
  Transmission Date: 20170428
  Serious: Yes (Hospitalization, Other)
  Sender: FDA-Public Use
  Company Number: None

PATIENT
  Age: 95 Year
  Sex: Male
  Weight: 80.4 kg

DRUGS (1)
  1. PIPERACILLIN/TAZOBACTAM [Suspect]
     Active Substance: PIPERACILLIN SODIUM\TAZOBACTAM SODIUM
     Route: 042
     Dates: start: 20170218, end: 20170221

REACTIONS (3)
  - Blood urea increased [None]
  - Blood creatine increased [None]
  - Tubulointerstitial nephritis [None]

NARRATIVE: CASE EVENT DATE: 20170221
